FAERS Safety Report 7038312-8 (Version None)
Quarter: 2010Q4

REPORT INFORMATION
  Report Type: 
  Country: None (occurrence: None)
  Receive Date: 20101011
  Receipt Date: 20100111
  Transmission Date: 20110411
  Serious: No
  Sender: FDA-Public Use
  Company Number: US-PFIZER INC-2010004765

PATIENT
  Sex: Female
  Weight: 50.794 kg

DRUGS (3)
  1. NEURONTIN [Suspect]
     Indication: NEURALGIA
     Dosage: 100 MG, 1X/DAY
     Dates: start: 20090901, end: 20091201
  2. LYRICA [Suspect]
     Indication: FIBROMYALGIA
     Dosage: 75 MG, 2X/DAY
     Dates: start: 20091218
  3. MAXALT [Concomitant]
     Indication: MIGRAINE
     Dosage: UNK

REACTIONS (4)
  - DRUG INEFFECTIVE [None]
  - FIBROMYALGIA [None]
  - PAIN [None]
  - WEIGHT INCREASED [None]
